FAERS Safety Report 4515486-1 (Version None)
Quarter: 2004Q4

REPORT INFORMATION
  Report Type: 
  Country: None (occurrence: None)
  Receive Date: 20041201
  Receipt Date: 20041123
  Transmission Date: 20050328
  Serious: Yes (Other)
  Sender: FDA-Public Use
  Company Number: PHEH2004US12637

PATIENT
  Sex: Male

DRUGS (1)
  1. LOPRESSOR [Suspect]
     Dosage: UNK/UNK

REACTIONS (2)
  - HALLUCINATION [None]
  - SUICIDAL IDEATION [None]
